FAERS Safety Report 16592271 (Version 2)
Quarter: 2019Q3

REPORT INFORMATION
  Report Type: Spontaneous
  Country: CN (occurrence: CN)
  Receive Date: 20190718
  Receipt Date: 20190718
  Transmission Date: 20191004
  Serious: Yes (Hospitalization)
  Sender: FDA-Public Use
  Company Number: CN-ELI_LILLY_AND_COMPANY-CN201907006318

PATIENT
  Age: 31 Year
  Sex: Female
  Weight: 92 kg

DRUGS (4)
  1. HUMAN INSULIN [Suspect]
     Active Substance: INSULIN HUMAN
     Indication: GESTATIONAL DIABETES
     Dosage: UNK, DAILY
     Route: 058
  2. INSULIN LISPRO [Suspect]
     Active Substance: INSULIN LISPRO
     Indication: GESTATIONAL DIABETES
  3. INSULIN ASPART [Suspect]
     Active Substance: INSULIN ASPART
     Indication: GESTATIONAL DIABETES
  4. BIOSYNTHETIC HUMAN INSULIN [Suspect]
     Active Substance: INSULIN HUMAN
     Indication: GESTATIONAL DIABETES
     Dosage: 14 U, DAILY
     Route: 058

REACTIONS (5)
  - Injection site urticaria [Recovered/Resolved]
  - Blood glucose increased [Recovered/Resolved]
  - Maternal exposure during pregnancy [Unknown]
  - Drug hypersensitivity [Unknown]
  - Blood glucose fluctuation [Recovered/Resolved]
